FAERS Safety Report 9945816 (Version 1)
Quarter: 2014Q1

REPORT INFORMATION
  Report Type: Spontaneous
  Country: US (occurrence: US)
  Receive Date: 20140303
  Receipt Date: 20140303
  Transmission Date: 20141002
  Serious: No
  Sender: FDA-Public Use
  Company Number: US-AMGEN-USASP2013068028

PATIENT
  Age: 65 Year
  Sex: Female

DRUGS (18)
  1. ENBREL [Suspect]
     Indication: PRODUCT USED FOR UNKNOWN INDICATION
     Dosage: 50 MG, QWK
     Route: 058
  2. METHOTREXATE [Concomitant]
     Dosage: 2.5 MG, UNK
  3. MEDROL                             /00049601/ [Concomitant]
     Dosage: 8 MG, UNK
  4. OXYCODONE [Concomitant]
     Dosage: 5 MG, UNK
  5. OXYCONTIN [Concomitant]
     Dosage: 10 MG, UNK
  6. FOLIC ACID [Concomitant]
     Dosage: 1 MG, UNK
  7. PRILOSEC                           /00661201/ [Concomitant]
     Dosage: 20 MG, UNK
  8. MULTIVITAMINS, PLAIN [Concomitant]
     Dosage: UNK
  9. MAGNESIUM OXIDE [Concomitant]
     Dosage: 400 MG, UNK
  10. ISOSORBID MONONITRAT [Concomitant]
     Dosage: 20 MG, UNK
  11. NITROSTAT [Concomitant]
     Dosage: 0.6 MG, UNK
  12. TUMS                               /00193601/ [Concomitant]
     Dosage: 500 MG, UNK
  13. COLACE [Concomitant]
     Dosage: 100 MG, UNK
  14. SENNA-S [Concomitant]
     Dosage: 8.6-50 MG
  15. CARAFATE [Concomitant]
     Dosage: 1 G, UNK
  16. PLETAL [Concomitant]
     Dosage: 100 MG, UNK
  17. VITAMIN D                          /00107901/ [Concomitant]
     Dosage: 50000 UNIT, UNK
  18. CALCIUM [Concomitant]
     Dosage: 500 UNK, UNK

REACTIONS (2)
  - Cyst [Unknown]
  - Arthropod bite [Unknown]
